FAERS Safety Report 5498490-9 (Version None)
Quarter: 2007Q4

REPORT INFORMATION
  Report Type: 
  Country: None (occurrence: None)
  Receive Date: 20071024
  Receipt Date: 20071024
  Transmission Date: 20080405
  Serious: Yes (Hospitalization)
  Sender: FDA-Public Use
  Company Number: None

PATIENT
  Sex: Female
  Weight: 72.5755 kg

DRUGS (14)
  1. ENBREL [Suspect]
     Indication: PSORIATIC ARTHROPATHY
     Dosage: 50MG 1XWK SQ
     Route: 058
     Dates: start: 20060701, end: 20070101
  2. METHOTREXATE [Concomitant]
  3. AZULFIDINE [Concomitant]
  4. FOLIC ACID [Concomitant]
  5. DURAGESIC-100 [Concomitant]
  6. LEVOXYL [Concomitant]
  7. DEPAKOTE [Concomitant]
  8. KLONOPIN [Concomitant]
  9. ADVAIR DISKUS 100/50 [Concomitant]
  10. ALBUTEROL [Concomitant]
  11. IRON [Concomitant]
  12. LYRICA [Concomitant]
  13. LEXAPRO [Concomitant]
  14. ROZEREM [Concomitant]

REACTIONS (1)
  - MENINGITIS [None]
